FAERS Safety Report 6015471-7 (Version None)
Quarter: 2008Q4

REPORT INFORMATION
  Report Type: 
  Country: None (occurrence: None)
  Receive Date: 20081222
  Receipt Date: 20081216
  Transmission Date: 20090506
  Serious: Yes (Life-Threatening, Hospitalization, Other)
  Sender: FDA-Public Use
  Company Number: DE-ELI_LILLY_AND_COMPANY-DE200811002452

PATIENT
  Sex: Female

DRUGS (13)
  1. BYETTA [Suspect]
     Indication: TYPE 2 DIABETES MELLITUS
     Dosage: 5 UG, UNKNOWN
     Route: 058
     Dates: start: 20080101, end: 20080101
  2. BYETTA [Suspect]
     Dosage: 10 UG, UNKNOWN
     Route: 058
     Dates: start: 20080625, end: 20080924
  3. RAMIPRIL [Concomitant]
     Dosage: UNK, UNKNOWN
     Route: 065
  4. DIGITOXIN TAB [Concomitant]
     Dosage: UNK, UNKNOWN
     Route: 065
  5. TORSEMIDE [Concomitant]
     Dosage: UNK, UNKNOWN
     Route: 065
  6. LYRICA [Concomitant]
     Dosage: UNK, UNKNOWN
     Route: 065
  7. ALLOPURINOL [Concomitant]
     Dosage: UNK, UNKNOWN
     Route: 065
  8. DOMPERIDONE [Concomitant]
     Dosage: UNK, UNKNOWN
     Route: 065
  9. SPIRONOLACTONE [Concomitant]
     Dosage: UNK, UNKNOWN
     Route: 065
  10. METOPROLOL TARTRATE [Concomitant]
     Dosage: UNK, UNKNOWN
     Route: 065
  11. SIMVASTATIN [Concomitant]
     Dosage: UNK, UNKNOWN
     Route: 065
  12. OMEP [Concomitant]
     Dosage: UNK, UNKNOWN
     Route: 065
  13. MOLSIDOMIN [Concomitant]
     Dosage: UNK, UNKNOWN
     Route: 065

REACTIONS (4)
  - ASTHENIA [None]
  - DEPRESSED LEVEL OF CONSCIOUSNESS [None]
  - RENAL FUNCTION TEST ABNORMAL [None]
  - STATUS EPILEPTICUS [None]
